FAERS Safety Report 4337665-9 (Version None)
Quarter: 2004Q1

REPORT INFORMATION
  Report Type: 
  Country: None (occurrence: None)
  Receive Date: 20040329
  Receipt Date: 20031224
  Transmission Date: 20041129
  Serious: No
  Sender: FDA-Public Use
  Company Number: USA031255408

PATIENT
  Age: 49 Year
  Sex: Female
  Weight: 86 kg

DRUGS (4)
  1. STRATTERA [Suspect]
     Indication: ATTENTION DEFICIT/HYPERACTIVITY DISORDER
     Dosage: 80 MG/IN THE MORNING
     Dates: start: 20031216
  2. EVENING PRIMROSE OIL [Concomitant]
  3. TRIPHASIL-21 [Concomitant]
  4. THYROLAR [Concomitant]

REACTIONS (7)
  - CONSTIPATION [None]
  - DRY MOUTH [None]
  - FEELING COLD [None]
  - HEADACHE [None]
  - HOT FLUSH [None]
  - INFLUENZA LIKE ILLNESS [None]
  - INSOMNIA [None]
